FAERS Safety Report 5051812-5 (Version None)
Quarter: 2006Q3

REPORT INFORMATION
  Report Type: 
  Country: None (occurrence: None)
  Receive Date: 20060712
  Receipt Date: 20060712
  Transmission Date: 20061208
  Serious: Yes (Hospitalization)
  Sender: FDA-Public Use
  Company Number: None

PATIENT
  Sex: Male
  Weight: 86.1834 kg

DRUGS (8)
  1. ZYPREXA [Suspect]
     Indication: AGITATION
     Dosage: 5-25MG QDAY PO
     Route: 048
     Dates: start: 20051216, end: 20051217
  2. DIVALPROEX SODIUM [Concomitant]
  3. CALCIUM CARBONATE [Concomitant]
  4. LISINOPRIL [Concomitant]
  5. DONEPEZIL HCL [Concomitant]
  6. LOVASTATIN [Concomitant]
  7. LORAZEPAM [Concomitant]
  8. ASPIRIN [Concomitant]

REACTIONS (3)
  - MENTAL STATUS CHANGES [None]
  - TONIC CLONIC MOVEMENTS [None]
  - TREMOR [None]
